FAERS Safety Report 10619101 (Version 1)
Quarter: 2014Q4

REPORT INFORMATION
  Report Type: Spontaneous
  Country: DE (occurrence: DE)
  Receive Date: 20141202
  Receipt Date: 20141202
  Transmission Date: 20150529
  Serious: Yes (Other)
  Sender: FDA-Public Use
  Company Number: DE-CELGENE-DEU-2014102276

PATIENT
  Age: 65 Year
  Sex: Male

DRUGS (4)
  1. ALL-TRANS RETINOIC ACID [Concomitant]
     Indication: ACUTE MYELOID LEUKAEMIA
     Route: 048
  2. AZACITIDINE. [Suspect]
     Active Substance: AZACITIDINE
     Route: 058
  3. AZACITIDINE. [Suspect]
     Active Substance: AZACITIDINE
     Indication: ACUTE MYELOID LEUKAEMIA
     Route: 058
  4. PIOGLITAZONE [Concomitant]
     Active Substance: PIOGLITAZONE
     Indication: ACUTE MYELOID LEUKAEMIA
     Route: 048

REACTIONS (4)
  - Neutropenia [Unknown]
  - Schizophrenia [Unknown]
  - Thrombocytopenia [Recovered/Resolved]
  - Anaemia [Unknown]
